FAERS Safety Report 7772015-7 (Version None)
Quarter: 2011Q3

REPORT INFORMATION
  Report Type: 
  Country: None (occurrence: None)
  Receive Date: 20110922
  Receipt Date: 20110126
  Transmission Date: 20111222
  Serious: No
  Sender: FDA-Public Use
  Company Number: US-ASTRAZENECA-2011SE04369

PATIENT
  Age: 62 Year
  Sex: Female
  Weight: 61.2 kg

DRUGS (8)
  1. PAXIL [Concomitant]
  2. PROGESTERONE [Concomitant]
  3. LAMICTAL [Concomitant]
  4. ARMOR THYROID [Concomitant]
  5. SEROQUEL XR [Suspect]
     Indication: SLEEP DISORDER
     Route: 048
     Dates: start: 20080101
  6. ESTRADIOL [Concomitant]
  7. TAXITA [Concomitant]
  8. SEROQUEL XR [Suspect]
     Indication: DEPRESSION
     Route: 048
     Dates: start: 20080101

REACTIONS (4)
  - DRUG DOSE OMISSION [None]
  - INSOMNIA [None]
  - ABDOMINAL PAIN UPPER [None]
  - DEPRESSION [None]
